FAERS Safety Report 6233348-9 (Version None)
Quarter: 2009Q2

REPORT INFORMATION
  Report Type: 
  Country: None (occurrence: None)
  Receive Date: 20090617
  Receipt Date: 20090603
  Transmission Date: 20091009
  Serious: Yes (Other)
  Sender: FDA-Public Use
  Company Number: BR-PFIZER INC-2009159824

PATIENT
  Age: 73 Year

DRUGS (3)
  1. FRONTAL [Suspect]
     Indication: INSOMNIA
     Dosage: UNK
     Route: 048
     Dates: start: 19980101, end: 20081201
  2. ALPRAZOLAM [Suspect]
     Indication: INSOMNIA
  3. BENICAR [Concomitant]
     Dosage: UNK
     Route: 065
     Dates: start: 20000101

REACTIONS (6)
  - DEPRESSION [None]
  - DRUG DEPENDENCE [None]
  - HERNIA [None]
  - INSOMNIA [None]
  - NIGHTMARE [None]
  - RECTAL CANCER [None]
